FAERS Safety Report 5172475-4 (Version None)
Quarter: 2006Q4

REPORT INFORMATION
  Report Type: 
  Country: None (occurrence: None)
  Receive Date: 20061213
  Receipt Date: 20060918
  Transmission Date: 20070319
  Serious: No
  Sender: FDA-Public Use
  Company Number: US-AMGEN-KDL193903

PATIENT
  Sex: Female

DRUGS (10)
  1. ENBREL [Suspect]
     Indication: RHEUMATOID ARTHRITIS
     Route: 058
     Dates: start: 19990406, end: 20060422
  2. METHOTREXATE [Concomitant]
     Route: 048
     Dates: start: 19941220
  3. CELEBREX [Concomitant]
     Dates: start: 19990122
  4. EFFEXOR [Concomitant]
  5. LISINOPRIL [Concomitant]
  6. KLONOPIN [Concomitant]
  7. SYNTHROID [Concomitant]
  8. PREVACID [Concomitant]
  9. TRILEPTAL [Concomitant]
  10. UNSPECIFIED MEDICATION [Concomitant]

REACTIONS (1)
  - ARTHRALGIA [None]
